FAERS Safety Report 8887094 (Version 5)
Quarter: 2014Q2

REPORT INFORMATION
  Report Type: Report from Study
  Country: CA (occurrence: CA)
  Receive Date: 20121105
  Receipt Date: 20140416
  Transmission Date: 20141212
  Serious: Yes (Death, Other)
  Sender: FDA-Public Use
  Company Number: PHHY2012CA100871

PATIENT
  Age: 83 Year
  Sex: Female

DRUGS (2)
  1. ACLASTA [Suspect]
     Indication: OSTEOPOROSIS
     Dosage: UNK
     Route: 042
     Dates: start: 20111201
  2. ACLASTA [Suspect]
     Dosage: UNK
     Route: 042
     Dates: start: 20121227

REACTIONS (5)
  - Death [Fatal]
  - Fall [Unknown]
  - Dementia [Unknown]
  - General physical health deterioration [Unknown]
  - Asthenia [Unknown]
